FAERS Safety Report 8115529 (Version 3)
Quarter: 2014Q2

REPORT INFORMATION
  Report Type: Spontaneous
  Country: US (occurrence: US)
  Receive Date: 20110831
  Receipt Date: 20140411
  Transmission Date: 20141212
  Serious: Yes (Hospitalization, Other)
  Sender: FDA-Public Use
  Company Number: US-BAYER-2011-079152

PATIENT
  Age: 24 Year
  Sex: Female

DRUGS (4)
  1. YASMIN [Suspect]
     Dosage: UNK
     Dates: start: 200101, end: 2006
  2. YAZ [Suspect]
     Dosage: UNK
     Dates: start: 200101, end: 2006
  3. WELLBUTRIN XL [Concomitant]
     Dosage: 150 MG, UNK
  4. CONCERTA [Concomitant]

REACTIONS (8)
  - Cholecystectomy [None]
  - Injury [None]
  - Pain [None]
  - General physical health deterioration [None]
  - Anxiety [None]
  - Emotional distress [None]
  - Anhedonia [None]
  - Cholecystitis acute [None]
